FAERS Safety Report 17491189 (Version 1)
Quarter: 2020Q1

REPORT INFORMATION
  Report Type: Spontaneous
  Country: US (occurrence: US)
  Receive Date: 20200303
  Receipt Date: 20200303
  Transmission Date: 20200409
  Serious: No
  Sender: FDA-Public Use
  Company Number: US-SA-2020SA052243

PATIENT
  Age: 62 Year
  Sex: Male

DRUGS (10)
  1. NEXIUM I.V. [Concomitant]
     Active Substance: ESOMEPRAZOLE SODIUM
  2. DUPIXENT [Suspect]
     Active Substance: DUPILUMAB
     Indication: BIPOLAR DISORDER
  3. LOSARTAN AND HYDROCHLOROTHIAZIDE [Concomitant]
     Active Substance: HYDROCHLOROTHIAZIDE\LOSARTAN POTASSIUM
  4. DUPIXENT [Suspect]
     Active Substance: DUPILUMAB
     Indication: HYPERLIPIDAEMIA
     Dosage: 300 MG, QOW
     Route: 058
     Dates: start: 20190801
  5. DUPIXENT [Suspect]
     Active Substance: DUPILUMAB
     Indication: DERMATITIS ATOPIC
  6. DEPAKOTE ER [Concomitant]
     Active Substance: DIVALPROEX SODIUM
  7. HALOBETASOL PROPIONATE. [Concomitant]
     Active Substance: HALOBETASOL PROPIONATE
  8. DUPIXENT [Suspect]
     Active Substance: DUPILUMAB
     Indication: OPEN ANGLE GLAUCOMA
  9. L-METHYLFOLATE [Concomitant]
     Active Substance: LEVOMEFOLIC ACID
  10. OMEGA 3 FISH OIL + VITAMIN D [Concomitant]

REACTIONS (7)
  - Skin fissures [Unknown]
  - Product use in unapproved indication [Unknown]
  - Eczema [Unknown]
  - Skin exfoliation [Unknown]
  - Dry skin [Unknown]
  - Pruritus [Unknown]
  - Blister [Unknown]

NARRATIVE: CASE EVENT DATE: 202002
